FAERS Safety Report 5195741-5 (Version None)
Quarter: 2007Q1

REPORT INFORMATION
  Report Type: 
  Country: None (occurrence: None)
  Receive Date: 20070102
  Receipt Date: 20061222
  Transmission Date: 20070707
  Serious: Yes (Hospitalization)
  Sender: FDA-Public Use
  Company Number: 2005SE03829

PATIENT
  Age: 6757 Day
  Sex: Female

DRUGS (4)
  1. SYMBICORT [Suspect]
     Indication: ASTHMA
     Dosage: 160/4.5 MCG 1 INHALATION BID
     Route: 055
     Dates: start: 20050512
  2. SYMBICORT [Suspect]
     Dosage: 160/4.5 MCG 1 INHALATION AS NEEDED
     Route: 055
     Dates: start: 20050512
  3. YASMIN [Concomitant]
     Indication: CONTRACEPTION
     Route: 048
     Dates: start: 20050511
  4. ZYRTEC [Concomitant]
     Indication: HYPERSENSITIVITY
     Route: 048
     Dates: start: 20040324

REACTIONS (1)
  - INFECTIOUS MONONUCLEOSIS [None]
